FAERS Safety Report 8722350 (Version 3)
Quarter: 2013Q4

REPORT INFORMATION
  Report Type: Spontaneous
  Country: IT (occurrence: IT)
  Receive Date: 20120814
  Receipt Date: 20131106
  Transmission Date: 20140711
  Serious: Yes (Hospitalization)
  Sender: FDA-Public Use
  Company Number: IT-MERCK-1208ITA004218

PATIENT
  Age: 53 Year
  Sex: Male

DRUGS (6)
  1. PEGINTRON [Suspect]
     Indication: HEPATITIS C
     Dosage: 150 MICROGRAM, QW
     Route: 058
     Dates: start: 20120723, end: 20120804
  2. REBETOL [Suspect]
     Indication: HEPATITIS C
     Dosage: 1400 MG, QD
     Route: 048
     Dates: start: 20120723, end: 20120804
  3. LOBIVON [Concomitant]
     Dosage: 5 MG, QD
     Route: 048
  4. PANTORC [Concomitant]
     Dosage: 40 MG, QD
     Route: 048
  5. GABAPENTIN [Concomitant]
  6. WELLBUTRIN [Concomitant]
     Dosage: UNK

REACTIONS (4)
  - Abdominal pain [Recovering/Resolving]
  - Diarrhoea [Recovering/Resolving]
  - Presyncope [Recovering/Resolving]
  - Pyrexia [Recovering/Resolving]
